FAERS Safety Report 16186307 (Version 1)
Quarter: 2019Q2

REPORT INFORMATION
  Report Type: Spontaneous
  Country: US (occurrence: US)
  Receive Date: 20190411
  Receipt Date: 20190411
  Transmission Date: 20190711
  Serious: No
  Sender: FDA-Public Use
  Company Number: US-PFIZER INC-2019153245

PATIENT
  Age: 84 Year
  Sex: Female
  Weight: 48.99 kg

DRUGS (1)
  1. CHANTIX [Suspect]
     Active Substance: VARENICLINE TARTRATE
     Indication: SMOKING CESSATION THERAPY
     Dosage: UNK
     Dates: start: 20190313

REACTIONS (4)
  - Nausea [Unknown]
  - Withdrawal syndrome [Unknown]
  - Intentional dose omission [Unknown]
  - Malaise [Unknown]
